FAERS Safety Report 7919241-1 (Version None)
Quarter: 2011Q4

REPORT INFORMATION
  Report Type: 
  Country: None (occurrence: None)
  Receive Date: 20111114
  Receipt Date: 20111101
  Transmission Date: 20120403
  Serious: Yes (Hospitalization)
  Sender: FDA-Public Use
  Company Number: IMP_05447_2011

PATIENT
  Age: 40 Year
  Sex: Female

DRUGS (1)
  1. METFORMIN HCL [Suspect]
     Indication: PRODUCT USED FOR UNKNOWN INDICATION
     Dosage: (150 TO 200 500-MG METFORMIN TABLETS ORAL)
     Route: 048

REACTIONS (10)
  - BLOOD CREATININE INCREASED [None]
  - INTENTIONAL OVERDOSE [None]
  - HYPOTENSION [None]
  - BODY TEMPERATURE DECREASED [None]
  - DIALYSIS [None]
  - PCO2 DECREASED [None]
  - DEPRESSED LEVEL OF CONSCIOUSNESS [None]
  - PH BODY FLUID DECREASED [None]
  - PO2 INCREASED [None]
  - BLOOD BICARBONATE DECREASED [None]
